FAERS Safety Report 14800374 (Version 1)
Quarter: 2018Q2

REPORT INFORMATION
  Report Type: Spontaneous
  Country: JP (occurrence: JP)
  Receive Date: 20180424
  Receipt Date: 20180424
  Transmission Date: 20180711
  Serious: Yes (Other)
  Sender: FDA-Public Use
  Company Number: JP-BRISTOL-MYERS SQUIBB COMPANY-BMS-2018-036549

PATIENT
  Age: 90 Year
  Sex: Female

DRUGS (1)
  1. ELIQUIS [Suspect]
     Active Substance: APIXABAN
     Indication: PRODUCT USED FOR UNKNOWN INDICATION
     Dosage: 2.5 MG, BID
     Route: 065
     Dates: start: 201803, end: 201804

REACTIONS (4)
  - Delirium [Unknown]
  - Dementia [Unknown]
  - Pollakiuria [Unknown]
  - Dysgeusia [Unknown]

NARRATIVE: CASE EVENT DATE: 20180413
